FAERS Safety Report 15232104 (Version 2)
Quarter: 2018Q3

REPORT INFORMATION
  Report Type: Spontaneous
  Country: US (occurrence: US)
  Receive Date: 20180802
  Receipt Date: 20180822
  Transmission Date: 20181010
  Serious: No
  Sender: FDA-Public Use
  Company Number: US-PFIZER INC-2018307319

PATIENT
  Age: 66 Year
  Sex: Female
  Weight: 113.4 kg

DRUGS (5)
  1. SYNTHROID [Concomitant]
     Active Substance: LEVOTHYROXINE SODIUM
     Dosage: 25 MG, UNK
  2. FOLBIC [Concomitant]
     Active Substance: CYANOCOBALAMIN\FOLIC ACID\PYRIDOXINE
     Dosage: UNK
  3. OMEPRAZOLE. [Concomitant]
     Active Substance: OMEPRAZOLE
     Indication: ABDOMINAL DISCOMFORT
     Dosage: UNK
  4. COUMADIN [Concomitant]
     Active Substance: WARFARIN SODIUM
     Indication: THROMBOSIS
     Dosage: UNK
  5. LYRICA [Suspect]
     Active Substance: PREGABALIN
     Indication: SCIATICA
     Dosage: 60 MG, 1X/DAY
     Dates: end: 20180729

REACTIONS (1)
  - Drug ineffective [Unknown]
